FAERS Safety Report 8180111-8 (Version None)
Quarter: 2012Q1

REPORT INFORMATION
  Report Type: 
  Country: None (occurrence: None)
  Receive Date: 20120302
  Receipt Date: 20120302
  Transmission Date: 20120608
  Serious: Yes (Other)
  Sender: FDA-Public Use
  Company Number: None

PATIENT
  Sex: Male

DRUGS (1)
  1. HUMIRA [Suspect]
     Indication: PSORIASIS
     Dosage: 40MG
     Route: 058
     Dates: start: 20110407, end: 20120301

REACTIONS (3)
  - HYPOAESTHESIA [None]
  - EYE MOVEMENT DISORDER [None]
  - PARAESTHESIA [None]
